FAERS Safety Report 20713344 (Version 1)
Quarter: 2022Q2

REPORT INFORMATION
  Report Type: Spontaneous
  Country: US (occurrence: US)
  Receive Date: 20220415
  Receipt Date: 20220415
  Transmission Date: 20220720
  Serious: No
  Sender: FDA-Public Use
  Company Number: US-009507513-2203USA007685

PATIENT
  Age: 57 Year
  Sex: Male

DRUGS (2)
  1. INTRON A [Suspect]
     Active Substance: INTERFERON ALFA-2B
     Indication: Renal cell carcinoma
     Dosage: UNK
  2. SUNITINIB [Concomitant]
     Active Substance: SUNITINIB
     Indication: Renal cell carcinoma
     Dosage: UNK

REACTIONS (1)
  - Product use in unapproved indication [Unknown]
